FAERS Safety Report 13965560 (Version 5)
Quarter: 2017Q4

REPORT INFORMATION
  Report Type: Report from Study
  Country: US (occurrence: US)
  Receive Date: 20170913
  Receipt Date: 20171221
  Transmission Date: 20180320
  Serious: Yes (Hospitalization)
  Sender: FDA-Public Use
  Company Number: US-BAYER-2017-169381

PATIENT
  Age: 27 Year
  Sex: Male

DRUGS (2)
  1. GADOLINIUM [Suspect]
     Active Substance: GADOLINIUM
     Indication: GASTROINTESTINAL EXAMINATION
  2. GADOLINIUM [Suspect]
     Active Substance: GADOLINIUM
     Indication: NUCLEAR MAGNETIC RESONANCE IMAGING
     Dosage: UNK UNK, ONCE

REACTIONS (16)
  - Skin burning sensation [None]
  - Food intolerance [None]
  - Contrast media deposition [None]
  - Psychomotor hyperactivity [None]
  - Decreased appetite [None]
  - Thirst [None]
  - Dyspepsia [None]
  - Drug hypersensitivity [None]
  - Arthropathy [None]
  - Nausea [None]
  - Heart rate increased [None]
  - Tendon disorder [None]
  - Dehydration [None]
  - Anxiety [None]
  - Peripheral swelling [None]
  - Visual impairment [None]
